FAERS Safety Report 12295061 (Version 8)
Quarter: 2021Q2

REPORT INFORMATION
  Report Type: Report from Study
  Country: JP (occurrence: JP)
  Receive Date: 20160422
  Receipt Date: 20210416
  Transmission Date: 20210716
  Serious: Yes (Hospitalization, Other)
  Sender: FDA-Public Use
  Company Number: JP-GLAXOSMITHKLINE-A200902503

PATIENT
  Age: 35 Year
  Sex: Male

DRUGS (21)
  1. NORVIR [Suspect]
     Active Substance: RITONAVIR
     Indication: HIV INFECTION
     Dosage: 100 MG, QD
     Route: 048
     Dates: start: 20050330, end: 20080215
  2. REYATAZ [Suspect]
     Active Substance: ATAZANAVIR SULFATE
     Indication: HIV INFECTION
     Dosage: 300 MG, QD
     Route: 048
     Dates: start: 20050330, end: 20080215
  3. TRUVADA [Suspect]
     Active Substance: EMTRICITABINE\TENOFOVIR DISOPROXIL FUMARATE
     Indication: HIV INFECTION
     Dosage: 1 DF, 1D
     Route: 048
     Dates: start: 20080216, end: 20170326
  4. RIBAVIRIN. [Suspect]
     Active Substance: RIBAVIRIN
     Indication: HEPATITIS C
     Dosage: 200 MG
     Route: 065
     Dates: start: 20051210, end: 20070320
  5. STOGAR [Concomitant]
     Active Substance: LAFUTIDINE
     Indication: GASTROOESOPHAGEAL REFLUX DISEASE
     Dosage: 10 MG, BID
     Dates: start: 20051210, end: 20080215
  6. PARIET [Concomitant]
     Active Substance: RABEPRAZOLE SODIUM
     Dosage: 10 MG
     Dates: start: 20051017, end: 20051210
  7. PEGINTERFERON ALFA 2A [Suspect]
     Active Substance: PEGINTERFERON ALFA-2A
     Indication: HEPATITIS C
     Dosage: 0.4 ML, WE
     Route: 058
     Dates: start: 20051004, end: 20070331
  8. PARIET [Concomitant]
     Active Substance: RABEPRAZOLE SODIUM
     Dosage: 20 MG
     Dates: start: 20050716, end: 20051016
  9. TIVICAY [Suspect]
     Active Substance: DOLUTEGRAVIR SODIUM
     Indication: HIV INFECTION
     Dosage: 50 MG, 1D
     Route: 048
     Dates: start: 20140712
  10. LAMIVUDINE. [Suspect]
     Active Substance: LAMIVUDINE
     Indication: HIV INFECTION
     Dosage: 300 MG, QD
     Route: 048
     Dates: start: 20050330, end: 20080215
  11. NORVIR [Suspect]
     Active Substance: RITONAVIR
     Dosage: 200 MG, 1D
     Route: 048
     Dates: start: 20080216, end: 20110311
  12. VIREAD [Suspect]
     Active Substance: TENOFOVIR DISOPROXIL FUMARATE
     Indication: HIV INFECTION
     Dosage: 300 MG, QD
     Route: 048
     Dates: start: 20050330, end: 20080215
  13. DESCOVY [Concomitant]
     Active Substance: EMTRICITABINE\TENOFOVIR ALAFENAMIDE FUMARATE
     Indication: HIV INFECTION
     Dosage: 1 DF, 1D
     Dates: start: 20170327
  14. ISENTRESS [Suspect]
     Active Substance: RALTEGRAVIR POTASSIUM
     Indication: HIV INFECTION
     Dosage: 800 MG, 1D
     Route: 048
     Dates: start: 20110312, end: 20140711
  15. RECOMBINATE [Concomitant]
     Active Substance: ANTIHEMOPHILIC FACTOR, HUMAN RECOMBINANT
     Indication: FACTOR VIII DEFICIENCY
     Dates: start: 20050330, end: 20070720
  16. ADVATE [Concomitant]
     Active Substance: ANTIHEMOPHILIC FACTOR, HUMAN RECOMBINANT
     Indication: FACTOR VIII DEFICIENCY
     Dosage: 1 KIU, UNK
     Dates: start: 20070721
  17. AMARYL [Concomitant]
     Active Substance: GLIMEPIRIDE
     Dosage: UNK
     Dates: start: 20180910
  18. PARIET [Concomitant]
     Active Substance: RABEPRAZOLE SODIUM
     Indication: GASTROOESOPHAGEAL REFLUX DISEASE
     Dosage: 10 MG, QD
     Dates: start: 20090401
  19. ONGLYZA [Concomitant]
     Active Substance: SAXAGLIPTIN HYDROCHLORIDE
     Dosage: UNK
     Dates: start: 20180910
  20. METGLUCO [Concomitant]
     Active Substance: METFORMIN HYDROCHLORIDE
     Dosage: UNK
     Dates: start: 20180910
  21. FOSAMPRENAVIR [Suspect]
     Active Substance: FOSAMPRENAVIR
     Indication: HIV INFECTION
     Dosage: 1400 MG, QD
     Route: 048
     Dates: start: 20080216, end: 20110311

REACTIONS (7)
  - Melaena [Recovering/Resolving]
  - Platelet count decreased [Not Recovered/Not Resolved]
  - Cholelithiasis [Recovered/Resolved]
  - Varices oesophageal [Not Recovered/Not Resolved]
  - Blood bilirubin increased [Recovered/Resolved]
  - White blood cell count decreased [Recovered/Resolved]
  - Lipoatrophy [Not Recovered/Not Resolved]

NARRATIVE: CASE EVENT DATE: 20050330
